FAERS Safety Report 26127229 (Version 2)
Quarter: 2025Q4

REPORT INFORMATION
  Report Type: Report from Study
  Country: CA (occurrence: None)
  Receive Date: 20251205
  Receipt Date: 20251223
  Transmission Date: 20260118
  Serious: Yes (Other)
  Sender: UCB
  Company Number: CA-UCBSA-2025073341

PATIENT

DRUGS (1)
  1. BIMEKIZUMAB [Suspect]
     Active Substance: BIMEKIZUMAB
     Indication: Psoriatic arthropathy
     Dosage: 160 MILLIGRAM Q4WEEKS,160 MILLIGRAM,EV 4 WEEKS

REACTIONS (2)
  - Pneumonia fungal [Not Recovered/Not Resolved]
  - Fungal infection [Unknown]
